FAERS Safety Report 4376435-2 (Version None)
Quarter: 2004Q2

REPORT INFORMATION
  Report Type: 
  Country: None (occurrence: None)
  Receive Date: 20040610
  Receipt Date: 20040610
  Transmission Date: 20050107
  Serious: Yes (Hospitalization)
  Sender: FDA-Public Use
  Company Number: None

PATIENT
  Age: 71 Year
  Sex: Female

DRUGS (11)
  1. PIOGLITAZONE HCL [Suspect]
     Indication: DIABETES MELLITUS
     Dosage: 15 MG DAILY ORAL
     Route: 048
     Dates: start: 20030601, end: 20040223
  2. PINDOLOL [Concomitant]
  3. TERAZOSIN HCL [Concomitant]
  4. ZOCOR [Concomitant]
  5. K-DUR 10 [Concomitant]
  6. DARVOCET [Concomitant]
  7. LISINPRIL [Concomitant]
  8. CLONAZEPAM [Concomitant]
  9. RELAFEN [Concomitant]
  10. NORVASC [Concomitant]
  11. NOVOLIN 70/30 [Concomitant]

REACTIONS (3)
  - ATRIAL FLUTTER [None]
  - CARDIAC FAILURE CONGESTIVE [None]
  - OEDEMA PERIPHERAL [None]
